FAERS Safety Report 9165162 (Version 1)
Quarter: 2013Q1

REPORT INFORMATION
  Report Type: Spontaneous
  Country: ES (occurrence: ES)
  Receive Date: 20130315
  Receipt Date: 20130315
  Transmission Date: 20140127
  Serious: Yes (Other)
  Sender: FDA-Public Use
  Company Number: ES-ASTELLAS-2013EU002363

PATIENT
  Age: 38 Year
  Sex: Female

DRUGS (3)
  1. TACROLIMUS SYSTEMIC [Suspect]
     Indication: HEART AND LUNG TRANSPLANT
     Dosage: UNK
     Route: 065
  2. AZATHIOPRINE [Suspect]
     Indication: HEART AND LUNG TRANSPLANT
     Dosage: UNK
     Route: 065
  3. CORTICOSTEROID NOS [Suspect]
     Indication: HEART AND LUNG TRANSPLANT
     Dosage: UNK
     Route: 065

REACTIONS (7)
  - Off label use [Unknown]
  - Exposure during pregnancy [Unknown]
  - Diarrhoea [Unknown]
  - Renal failure [Unknown]
  - Hypertensive crisis [Unknown]
  - Pulmonary oedema [Unknown]
  - Premature labour [Unknown]
